FAERS Safety Report 10641133 (Version 2)
Quarter: 2015Q1

REPORT INFORMATION
  Report Type: Spontaneous
  Country: JP (occurrence: JP)
  Receive Date: 20141209
  Receipt Date: 20150121
  Transmission Date: 20150720
  Serious: Yes (Hospitalization)
  Sender: FDA-Public Use
  Company Number: JP-DSJP-DSJ-2014-131120

PATIENT

DRUGS (4)
  1. OLMETEC [Suspect]
     Active Substance: OLMESARTAN MEDOXOMIL
     Indication: HYPERTENSION
     Dosage: UNK
     Route: 065
  2. COENZYME (UBIDECARENONE) [Suspect]
     Active Substance: UBIDECARENONE
     Dosage: UNK
     Route: 065
  3. LOXONIN [Concomitant]
     Active Substance: LOXOPROFEN SODIUM
     Indication: PRODUCT USED FOR UNKNOWN INDICATION
     Dosage: UNK
     Route: 065
  4. CALBLOCK [Suspect]
     Active Substance: AZELNIDIPINE
     Indication: HYPERTENSION
     Dosage: UNK
     Route: 065

REACTIONS (3)
  - Insulin autoimmune syndrome [Recovering/Resolving]
  - Primary hyperaldosteronism [None]
  - Maternal exposure during pregnancy [None]
